FAERS Safety Report 17427424 (Version 1)
Quarter: 2020Q1

REPORT INFORMATION
  Report Type: Spontaneous
  Country: IN (occurrence: IN)
  Receive Date: 20200218
  Receipt Date: 20200218
  Transmission Date: 20200409
  Serious: Yes (Other)
  Sender: FDA-Public Use
  Company Number: IN-ALKEM LABORATORIES LIMITED-IN-ALKEM-2019-01327

PATIENT
  Age: 6 Year
  Sex: Male

DRUGS (4)
  1. PARA AMINOSALICYLATE SODIUM [Concomitant]
     Indication: TUBERCULOSIS
     Dosage: 200 MG/KG, QD
     Route: 065
  2. PYRIDOXINE [Concomitant]
     Active Substance: PYRIDOXINE
     Indication: TUBERCULOSIS
     Dosage: 10 MG, UNK
     Route: 065
  3. LINEZOLID. [Suspect]
     Active Substance: LINEZOLID
     Indication: TUBERCULOSIS
     Dosage: 10 MG/KG, TID
     Route: 048
  4. CYCLOSERINE. [Concomitant]
     Active Substance: CYCLOSERINE
     Indication: TUBERCULOSIS
     Dosage: 15 MG/KG, QD
     Route: 065

REACTIONS (1)
  - Optic neuropathy [Recovered/Resolved]
